FAERS Safety Report 4502716-5 (Version None)
Quarter: 2004Q4

REPORT INFORMATION
  Report Type: 
  Country: None (occurrence: None)
  Receive Date: 20041112
  Receipt Date: 20041104
  Transmission Date: 20050328
  Serious: Yes (Hospitalization)
  Sender: FDA-Public Use
  Company Number: 2004UW22805

PATIENT
  Age: 62 Year
  Sex: Female
  Weight: 72 kg

DRUGS (10)
  1. IRESSA [Suspect]
     Indication: NON-SMALL CELL LUNG CANCER METASTATIC
     Dosage: 250 MG QD PO
     Route: 048
     Dates: start: 20031215, end: 20040823
  2. IRESSA [Suspect]
     Indication: NON-SMALL CELL LUNG CANCER METASTATIC
     Dosage: 250 MG QD PO
     Route: 048
     Dates: start: 20040916, end: 20041015
  3. IRESSA [Suspect]
     Indication: NON-SMALL CELL LUNG CANCER METASTATIC
     Dosage: 250 MG QD PO
     Route: 048
     Dates: start: 20041018, end: 20041101
  4. TYLENOL [Concomitant]
  5. PROTONIX [Concomitant]
  6. PREMARIN [Concomitant]
  7. CLEOCIN T [Concomitant]
  8. BACTRIM [Concomitant]
  9. IMODIUM [Concomitant]
  10. MULTI-VITAMINS [Concomitant]

REACTIONS (5)
  - BLOOD CREATININE INCREASED [None]
  - DEHYDRATION [None]
  - HEPATITIS [None]
  - NAUSEA [None]
  - VOMITING [None]
